FAERS Safety Report 4367100-6 (Version None)
Quarter: 2004Q2

REPORT INFORMATION
  Report Type: 
  Country: None (occurrence: None)
  Receive Date: 20040524
  Receipt Date: 20040505
  Transmission Date: 20050107
  Serious: Yes (Hospitalization)
  Sender: FDA-Public Use
  Company Number: US-SHR-04-020708

PATIENT
  Age: 36 Year
  Sex: Male
  Weight: 107 kg

DRUGS (9)
  1. BETASERON [Suspect]
     Indication: MULTIPLE SCLEROSIS
     Dosage: 8 MIU, EVERY 2D, PM, SUBCUTANEOUS
     Route: 058
     Dates: start: 19971101
  2. PREDNISONE [Concomitant]
  3. BACLOFEN [Concomitant]
  4. XANAX [Concomitant]
  5. CELEBREX [Concomitant]
  6. RANITIDINE [Concomitant]
  7. NEURONTIN [Concomitant]
  8. LISINOPRIL W/HYDROCHLOROTHIAZIDE (LISINOPRIL) [Concomitant]
  9. MARIJUANA (CANNABIS SATIVA) [Concomitant]

REACTIONS (11)
  - BLOOD PRESSURE SYSTOLIC INCREASED [None]
  - CHEST PAIN [None]
  - CHILLS [None]
  - CONDITION AGGRAVATED [None]
  - DYSKINESIA [None]
  - DYSPNOEA [None]
  - FALL [None]
  - MULTIPLE SCLEROSIS RELAPSE [None]
  - PALPITATIONS [None]
  - PYREXIA [None]
  - SINUS TACHYCARDIA [None]
